FAERS Safety Report 9709622 (Version 2)
Quarter: 2014Q1

REPORT INFORMATION
  Report Type: Spontaneous
  Country: US (occurrence: US)
  Receive Date: 20131126
  Receipt Date: 20140127
  Transmission Date: 20141002
  Serious: Yes (Hospitalization, Disabling, Other)
  Sender: FDA-Public Use
  Company Number: US-BIOGENIDEC-2013BI113829

PATIENT
  Sex: Female

DRUGS (1)
  1. TYSABRI [Suspect]
     Indication: MULTIPLE SCLEROSIS
     Route: 042
     Dates: start: 20130821

REACTIONS (4)
  - Multiple sclerosis relapse [Recovered/Resolved]
  - Neuromyelitis optica [Not Recovered/Not Resolved]
  - Aphasia [Not Recovered/Not Resolved]
  - Abasia [Not Recovered/Not Resolved]
